FAERS Safety Report 8841951 (Version 1)
Quarter: 2012Q4

REPORT INFORMATION
  Report Type: Spontaneous
  Country: US (occurrence: None)
  Receive Date: 20121015
  Receipt Date: 20121015
  Transmission Date: 20130627
  Serious: Yes (Death)
  Sender: FDA-Public Use
  Company Number: None

PATIENT
  Age: 84 Year
  Sex: Male
  Weight: 79.38 kg

DRUGS (1)
  1. PRADAXA [Suspect]
     Indication: DRUG THERAPY
     Dates: start: 20110309, end: 201104

REACTIONS (3)
  - Pain in extremity [None]
  - Muscle spasms [None]
  - Myocardial infarction [None]
